FAERS Safety Report 17337284 (Version 2)
Quarter: 2020Q3

REPORT INFORMATION
  Report Type: Report from Study
  Country: US (occurrence: US)
  Receive Date: 20200129
  Receipt Date: 20200711
  Transmission Date: 20201102
  Serious: No
  Sender: FDA-Public Use
  Company Number: PHHY2019US193246

PATIENT
  Age: 46 Year
  Sex: Male

DRUGS (1)
  1. GILENYA [Suspect]
     Active Substance: FINGOLIMOD HYDROCHLORIDE
     Indication: MULTIPLE SCLEROSIS
     Dosage: UNK, QD
     Route: 048

REACTIONS (5)
  - Melanocytic naevus [Not Recovered/Not Resolved]
  - Stasis dermatitis [Not Recovered/Not Resolved]
  - Dysplastic naevus [Not Recovered/Not Resolved]
  - Sebaceous hyperplasia [Not Recovered/Not Resolved]
  - Atrioventricular block first degree [Recovered/Resolved]

NARRATIVE: CASE EVENT DATE: 20180326
